FAERS Safety Report 23415971 (Version 3)
Quarter: 2024Q1

REPORT INFORMATION
  Report Type: Spontaneous
  Country: US (occurrence: US)
  Receive Date: 20240118
  Receipt Date: 20240228
  Transmission Date: 20240409
  Serious: Yes (Hospitalization)
  Sender: FDA-Public Use
  Company Number: US-PFIZER INC-PV202400004339

PATIENT
  Age: 31 Year
  Sex: Female

DRUGS (1)
  1. MEDROXYPROGESTERONE ACETATE [Suspect]
     Active Substance: MEDROXYPROGESTERONE ACETATE
     Indication: Contraception
     Dosage: UNK

REACTIONS (7)
  - Headache [Unknown]
  - Migraine [Unknown]
  - Vomiting [Unknown]
  - Insomnia [Unknown]
  - Drug dose omission by device [Unknown]
  - Syringe issue [Unknown]
  - Device issue [Unknown]

NARRATIVE: CASE EVENT DATE: 20230101
